FAERS Safety Report 20998960 (Version 3)
Quarter: 2023Q4

REPORT INFORMATION
  Report Type: Spontaneous
  Country: US (occurrence: US)
  Receive Date: 20220623
  Receipt Date: 20231206
  Transmission Date: 20240110
  Serious: No
  Sender: FDA-Public Use
  Company Number: US-PFIZER INC-202200820466

PATIENT
  Age: 42 Year
  Sex: Female

DRUGS (1)
  1. XELJANZ XR [Suspect]
     Active Substance: TOFACITINIB CITRATE
     Indication: Fatigue
     Dosage: UNK

REACTIONS (5)
  - Gait disturbance [Unknown]
  - Pain [Unknown]
  - Nausea [Unknown]
  - Therapeutic product effective for unapproved indication [Unknown]
  - Off label use [Unknown]
